FAERS Safety Report 10885186 (Version 4)
Quarter: 2020Q1

REPORT INFORMATION
  Report Type: Report from Study
  Country: US (occurrence: US)
  Receive Date: 20150304
  Receipt Date: 20200302
  Transmission Date: 20200409
  Serious: Yes (Hospitalization, Other)
  Sender: FDA-Public Use
  Company Number: US-SA-2014SA070989

PATIENT
  Age: 58 Year
  Sex: Female

DRUGS (7)
  1. INSULIN GLARGINE [Suspect]
     Active Substance: INSULIN GLARGINE
     Dosage: 90 DF,QD
     Route: 058
  2. INSULIN GLARGINE [Suspect]
     Active Substance: INSULIN GLARGINE
     Dosage: 60 IU,HS
     Route: 058
     Dates: start: 2009
  3. APIDRA [Suspect]
     Active Substance: INSULIN GLULISINE
     Indication: TYPE 2 DIABETES MELLITUS
     Dosage: UNK UNK,UNK
     Route: 058
  4. INSULIN GLARGINE [Suspect]
     Active Substance: INSULIN GLARGINE
     Indication: TYPE 2 DIABETES MELLITUS
     Dosage: 75 DF,HS
     Route: 058
     Dates: start: 2008
  5. INSULIN GLARGINE [Suspect]
     Active Substance: INSULIN GLARGINE
     Dosage: 42 DF,BID
     Route: 058
  6. INSULIN GLARGINE [Suspect]
     Active Substance: INSULIN GLARGINE
     Dosage: 75 DF,HS
     Route: 058
     Dates: start: 2008
  7. INSULIN GLARGINE [Suspect]
     Active Substance: INSULIN GLARGINE
     Dosage: 42 DF,BID
     Route: 058

REACTIONS (27)
  - Fall [Recovered/Resolved]
  - Glaucoma [Unknown]
  - Glycosylated haemoglobin increased [Unknown]
  - Diabetic coma [Unknown]
  - Hyperglycaemia [Unknown]
  - Road traffic accident [Unknown]
  - Pneumonia [Unknown]
  - Renal impairment [Unknown]
  - Gait inability [Unknown]
  - Hypoaesthesia [Unknown]
  - Perirenal haematoma [Recovered/Resolved]
  - Nausea [Recovered/Resolved]
  - Fall [Unknown]
  - Product administration error [Unknown]
  - Ligament sprain [Unknown]
  - Mobility decreased [Unknown]
  - Exostosis [Unknown]
  - Visual impairment [Unknown]
  - Vomiting [Recovered/Resolved]
  - Back pain [Recovered/Resolved]
  - Neoplasm malignant [Unknown]
  - Lower limb fracture [Unknown]
  - Brain neoplasm [Unknown]
  - Dizziness [Recovered/Resolved]
  - Presyncope [Recovered/Resolved]
  - Hospitalisation [Unknown]
  - Drug ineffective [Unknown]

NARRATIVE: CASE EVENT DATE: 2009
